FAERS Safety Report 5558254-4 (Version None)
Quarter: 2007Q4

REPORT INFORMATION
  Report Type: 
  Country: None (occurrence: None)
  Receive Date: 20071214
  Receipt Date: 20071204
  Transmission Date: 20080405
  Serious: Yes (Other)
  Sender: FDA-Public Use
  Company Number: US-PFIZER INC-2007102461

PATIENT
  Sex: Male

DRUGS (10)
  1. DILANTIN [Suspect]
     Indication: CONVULSION
  2. PHENYTOIN [Suspect]
     Indication: CONVULSION
  3. PHENOBARBITAL TAB [Concomitant]
  4. LEVOTHYROXINE SODIUM [Concomitant]
  5. CLONIDINE [Concomitant]
  6. NORVASC [Concomitant]
  7. HUMATIN [Concomitant]
  8. INSULIN LISPRO [Concomitant]
  9. CHOLESTEROL- AND TRIGLYCERIDE REDUCERS [Concomitant]
  10. CALCITRIOL [Concomitant]

REACTIONS (5)
  - ANTICONVULSANT DRUG LEVEL BELOW THERAPEUTIC [None]
  - ANXIETY [None]
  - BLEPHAROSPASM [None]
  - DRUG INEFFECTIVE [None]
  - EMOTIONAL DISTRESS [None]
